FAERS Safety Report 8563534-4 (Version None)
Quarter: 2012Q3

REPORT INFORMATION
  Report Type: 
  Country: None (occurrence: None)
  Receive Date: 20120802
  Receipt Date: 20120723
  Transmission Date: 20120928
  Serious: Yes (Other)
  Sender: FDA-Public Use
  Company Number: NL-AMGEN-NLDSP2012044178

PATIENT
  Age: 44 Year
  Sex: Female

DRUGS (5)
  1. IBUPROFEN [Concomitant]
     Dosage: UNK UNK, UNK
  2. ACETAMINOPHEN [Concomitant]
     Dosage: UNK UNK, UNK
  3. METHOTREXATE SODIUM [Concomitant]
     Dosage: UNK
  4. ENBREL [Suspect]
     Indication: RHEUMATOID ARTHRITIS
     Dosage: 50 MG, WEEKLY
     Dates: start: 20120619
  5. TRAMADOL HYDROCHLORIDE [Concomitant]
     Dosage: UNK

REACTIONS (2)
  - RHEUMATOID ARTHRITIS [None]
  - FATIGUE [None]
